FAERS Safety Report 7460042-9 (Version None)
Quarter: 2011Q2

REPORT INFORMATION
  Report Type: 
  Country: None (occurrence: None)
  Receive Date: 20110505
  Receipt Date: 20110421
  Transmission Date: 20111010
  Serious: Yes (Hospitalization, Other)
  Sender: FDA-Public Use
  Company Number: PHHY2011JP34567

PATIENT
  Sex: Female
  Weight: 66 kg

DRUGS (9)
  1. ALLELOCK [Concomitant]
     Dosage: 10 MG, UNK
     Route: 048
     Dates: start: 20100324
  2. ADALAT CC [Concomitant]
     Indication: HYPERTENSION
     Dosage: 20 MG, UNK
     Route: 048
     Dates: start: 20030716, end: 20100603
  3. MERISLON [Concomitant]
     Dosage: 18 MG, UNK
     Route: 048
     Dates: start: 20100616
  4. CO-DIOVAN [Suspect]
     Indication: HYPERTENSION
     Dosage: 1 DF, DAILY
     Route: 048
     Dates: start: 20100324, end: 20100817
  5. COLIOPAN [Concomitant]
     Dosage: 30 MG, UNK
     Route: 048
     Dates: start: 20040916
  6. STAYBLA [Concomitant]
     Dosage: 0.2 MG, UNK
     Dates: start: 20071010
  7. MIYA-BM [Concomitant]
     Dosage: 3 DF, UNK
     Route: 048
     Dates: start: 20080701
  8. STROCAIN [Concomitant]
     Dosage: 15 MG, UNK
     Route: 048
     Dates: start: 20040916
  9. TAKEPRON [Concomitant]
     Dosage: 30 MG, UNK
     Route: 048
     Dates: start: 20091208

REACTIONS (9)
  - SELF-INJURIOUS IDEATION [None]
  - DECREASED APPETITE [None]
  - SCHIZOPHRENIA [None]
  - HYPONATRAEMIA [None]
  - HYPOKALAEMIA [None]
  - NAUSEA [None]
  - VOMITING [None]
  - HYPERHIDROSIS [None]
  - BLOOD PRESSURE DIASTOLIC DECREASED [None]
